FAERS Safety Report 8096818-7 (Version None)
Quarter: 2012Q1

REPORT INFORMATION
  Report Type: 
  Country: None (occurrence: None)
  Receive Date: 20120129
  Receipt Date: 20111130
  Transmission Date: 20120608
  Serious: No
  Sender: FDA-Public Use
  Company Number: US-ABBOTT-11P-163-0879561-00

PATIENT
  Age: 73 Year
  Sex: Female

DRUGS (10)
  1. HUMIRA [Suspect]
     Indication: RHEUMATOID ARTHRITIS
     Dates: start: 20111001
  2. METHOTREXATE [Concomitant]
     Indication: RHEUMATOID ARTHRITIS
     Dosage: 2.5 MG TAKES 8 WEEKLY
  3. FERROUS SULFATE TAB [Concomitant]
     Indication: ANAEMIA
     Dosage: DAILY
  4. PREDNISONE TAB [Concomitant]
     Indication: RHEUMATOID ARTHRITIS
     Dosage: DAILY
  5. OMEPRAZOLE [Concomitant]
     Indication: ERUCTATION
     Dosage: DAILY
  6. LOSARTAN POTASSIUM [Concomitant]
     Indication: BLOOD PRESSURE
  7. VITAMIN D [Concomitant]
     Indication: VITAMIN SUPPLEMENTATION
  8. METOPROLOL TARTRATE [Concomitant]
     Indication: BLOOD PRESSURE
     Dosage: AT BEDTIME
  9. FOLIC ACID [Concomitant]
     Indication: ILL-DEFINED DISORDER
     Dosage: DAILY
  10. ASPIRIN [Concomitant]
     Indication: ATRIAL FIBRILLATION
     Dosage: 325 DAILY

REACTIONS (2)
  - URTICARIA [None]
  - BLOOD PRESSURE INCREASED [None]
